FAERS Safety Report 5656280-8 (Version None)
Quarter: 2008Q1

REPORT INFORMATION
  Report Type: 
  Country: None (occurrence: None)
  Receive Date: 20080309
  Receipt Date: 20070724
  Transmission Date: 20080703
  Serious: No
  Sender: FDA-Public Use
  Company Number: US-BAYER-200711699BCC

PATIENT
  Age: 83 Year
  Sex: Female
  Weight: 52 kg

DRUGS (14)
  1. ALEVE [Suspect]
     Indication: POLYARTHRITIS
     Dosage: TOTAL DAILY DOSE: 1760 MG  UNIT DOSE: 220 MG
     Route: 048
     Dates: start: 20070522
  2. ALEVE [Suspect]
     Dosage: AS USED: 440/220 MG  UNIT DOSE: 220 MG
     Route: 048
     Dates: start: 20070523
  3. ALBUTEROL [Concomitant]
  4. ADVAIR DISKUS 100/50 [Concomitant]
     Route: 055
  5. SPIRIVA [Concomitant]
     Dosage: TOTAL DAILY DOSE: 18 MG  UNIT DOSE: 18 MG
  6. CENTRUM SILVER [Concomitant]
  7. ASPIRIN [Concomitant]
     Dosage: TOTAL DAILY DOSE: 81 MG  UNIT DOSE: 81 MG
     Route: 048
  8. CALTRATE [Concomitant]
     Dosage: TOTAL DAILY DOSE: 600 MG  UNIT DOSE: 600 MG
  9. DIGITEK [Concomitant]
     Dosage: TOTAL DAILY DOSE: 0.0625 MG  UNIT DOSE: 0.125 MG
  10. PEPCID [Concomitant]
     Dosage: TOTAL DAILY DOSE: 40 MG  UNIT DOSE: 20 MG
     Route: 048
  11. CARTIA XT [Concomitant]
  12. STOOL SOFTENER [Concomitant]
  13. XANAX [Concomitant]
  14. DITROPAN [Concomitant]

REACTIONS (6)
  - ARTHRITIS [None]
  - DIZZINESS [None]
  - DYSPNOEA [None]
  - NAUSEA [None]
  - NERVOUSNESS [None]
  - NO ADVERSE EVENT [None]
